FAERS Safety Report 19177824 (Version 1)
Quarter: 2021Q2

REPORT INFORMATION
  Report Type: Report from Study
  Country: GB (occurrence: GB)
  Receive Date: 20210426
  Receipt Date: 20210426
  Transmission Date: 20210717
  Serious: Yes (Other)
  Sender: FDA-Public Use
  Company Number: GB-SAMSUNG BIOEPIS-SB-2021-09958

PATIENT
  Sex: Male

DRUGS (3)
  1. IMRALDI [Suspect]
     Active Substance: ADALIMUMAB
     Indication: CROHN^S DISEASE
     Dosage: WEEK ZERO
     Route: 058
     Dates: start: 20191007
  2. IMRALDI [Suspect]
     Active Substance: ADALIMUMAB
     Dosage: WEEK TWO
     Route: 058
  3. IMRALDI [Suspect]
     Active Substance: ADALIMUMAB
     Route: 058

REACTIONS (1)
  - COVID-19 [Unknown]
